FAERS Safety Report 21639827 (Version 3)
Quarter: 2022Q4

REPORT INFORMATION
  Report Type: Spontaneous
  Country: DE (occurrence: DE)
  Receive Date: 20221124
  Receipt Date: 20221213
  Transmission Date: 20230113
  Serious: Yes (Other)
  Sender: FDA-Public Use
  Company Number: DE-ROCHE-3223653

PATIENT
  Sex: Male

DRUGS (14)
  1. GEMCITABINE [Suspect]
     Active Substance: GEMCITABINE
     Indication: Diffuse large B-cell lymphoma
     Dosage: FIRST LINE WITH RITUXIMAB
     Route: 065
  2. POLATUZUMAB VEDOTIN [Suspect]
     Active Substance: POLATUZUMAB VEDOTIN
     Indication: Diffuse large B-cell lymphoma
     Dosage: THIRD LINE TWICE WITH RITUXIMAB?THIRD LINE ONCE WITH RITUXIMAB AND BENDAMUSTINE
     Route: 065
     Dates: start: 20201101, end: 20210101
  3. MABTHERA [Suspect]
     Active Substance: RITUXIMAB
     Indication: Diffuse large B-cell lymphoma
     Dosage: FIRST LINE WITH CHOP
     Route: 065
     Dates: start: 20190101, end: 20190701
  4. MABTHERA [Suspect]
     Active Substance: RITUXIMAB
     Dosage: SECOND LINE WITH GDP AND HD-BEAM
     Route: 065
     Dates: start: 20200501, end: 20200801
  5. MABTHERA [Suspect]
     Active Substance: RITUXIMAB
     Dosage: THIRD LINE ONCE WITH POLATUZUMAB AND BENDAMUSTINE
     Route: 065
     Dates: start: 20201101, end: 20210101
  6. MABTHERA [Suspect]
     Active Substance: RITUXIMAB
     Dosage: THIRD LINE TWICE WITH POLATUZUMAB
     Route: 065
     Dates: start: 20201101, end: 20210101
  7. LENALIDOMIDE [Suspect]
     Active Substance: LENALIDOMIDE
     Indication: Diffuse large B-cell lymphoma
     Dosage: WITH TAFASITAMAB
     Route: 065
     Dates: start: 20220601, end: 20221001
  8. CYCLOPHOSPHAMIDE\DOXORUBICIN\PREDNISONE\VINCRISTINE [Suspect]
     Active Substance: CYCLOPHOSPHAMIDE\DOXORUBICIN\PREDNISONE\VINCRISTINE
     Indication: Diffuse large B-cell lymphoma
     Dosage: FIRST LINE WITH RITUXIMAB
     Route: 065
     Dates: start: 201901, end: 20190701
  9. DEXAMETHASONE [Suspect]
     Active Substance: DEXAMETHASONE
     Indication: Diffuse large B-cell lymphoma
     Dosage: SECOND LINE WITH RITUXIMAB AND GDP
     Route: 065
  10. TAFASITAMAB-CXIX [Suspect]
     Active Substance: TAFASITAMAB-CXIX
     Indication: Diffuse large B-cell lymphoma
     Dosage: WITH LENALIDOMIDE
     Route: 065
     Dates: start: 20220601, end: 20221001
  11. CISPLATIN [Suspect]
     Active Substance: CISPLATIN
     Indication: Diffuse large B-cell lymphoma
     Dosage: SECOND LINE WITH RITUXIMAB AND HD-BEAM
     Route: 065
  12. BENDAMUSTINE [Suspect]
     Active Substance: BENDAMUSTINE
     Indication: Diffuse large B-cell lymphoma
     Dosage: ONCE WITH POLATUZUMAB AND RITUXIMAB
     Route: 065
     Dates: start: 20201101, end: 20210101
  13. BEAM [Suspect]
     Active Substance: SODIUM FLUORIDE
     Indication: Diffuse large B-cell lymphoma
     Dosage: THIRD LINE TWICE WITH RITUXIMAB
     Route: 065
  14. BENDAMUSTINE [Concomitant]
     Active Substance: BENDAMUSTINE
     Indication: Diffuse large B-cell lymphoma

REACTIONS (3)
  - Hepatitis C [Recovered/Resolved]
  - Hepatitis B [Unknown]
  - Lymphoma [Not Recovered/Not Resolved]
